FAERS Safety Report 8005782-8 (Version None)
Quarter: 2011Q4

REPORT INFORMATION
  Report Type: 
  Country: None (occurrence: None)
  Receive Date: 20111223
  Receipt Date: 20111216
  Transmission Date: 20120403
  Serious: Yes (Other)
  Sender: FDA-Public Use
  Company Number: US-ELI_LILLY_AND_COMPANY-US201112006038

PATIENT
  Age: 55 Year
  Sex: Female
  Weight: 106.1 kg

DRUGS (3)
  1. COUMADIN [Concomitant]
  2. REMODULIN [Concomitant]
     Indication: PULMONARY EMBOLISM
     Dosage: UNK
     Route: 042
     Dates: start: 20111123
  3. ADCIRCA [Suspect]
     Dosage: UNK, UNKNOWN

REACTIONS (2)
  - DIALYSIS [None]
  - HYPOTENSION [None]
